FAERS Safety Report 25708179 (Version 2)
Quarter: 2025Q4

REPORT INFORMATION
  Report Type: Spontaneous
  Country: EU (occurrence: EU)
  Receive Date: 20250820
  Receipt Date: 20251107
  Transmission Date: 20260118
  Serious: Yes (Other)
  Sender: ASTELLAS
  Company Number: EU-ASTELLAS-2025-AER-044743

PATIENT
  Age: 23 Year
  Sex: Male

DRUGS (6)
  1. PROGRAF [Suspect]
     Active Substance: TACROLIMUS
     Indication: Renal transplant
     Route: 048
     Dates: start: 200308
  2. METHYLPREDNISOLONE [Suspect]
     Active Substance: METHYLPREDNISOLONE
     Indication: Renal transplant
     Route: 065
     Dates: start: 200308
  3. AZATHIOPRINE [Suspect]
     Active Substance: AZATHIOPRINE
     Indication: Renal transplant
     Dosage: DISCONTINUE
     Route: 065
     Dates: start: 200308
  4. BORTEZOMIB [Suspect]
     Active Substance: BORTEZOMIB
     Indication: Post transplant lymphoproliferative disorder
     Dosage: 8 CYCLES
     Route: 065
     Dates: start: 2022
  5. RITUXIMAB [Suspect]
     Active Substance: RITUXIMAB
     Indication: Post transplant lymphoproliferative disorder
     Dosage: 9 CYCLES
     Route: 065
     Dates: start: 2022
  6. DEXAMETHASONE [Suspect]
     Active Substance: DEXAMETHASONE

REACTIONS (4)
  - Epstein-Barr virus infection [Recovered/Resolved]
  - Post transplant lymphoproliferative disorder [Recovered/Resolved]
  - COVID-19 [Recovered/Resolved]
  - Myocarditis [Recovered/Resolved]

NARRATIVE: CASE EVENT DATE: 20220811
